FAERS Safety Report 10538200 (Version 1)
Quarter: 2014Q4

REPORT INFORMATION
  Report Type: Spontaneous
  Country: GB (occurrence: GB)
  Receive Date: 20141023
  Receipt Date: 20141023
  Transmission Date: 20150529
  Serious: Yes (Other)
  Sender: FDA-Public Use
  Company Number: GB-ACTAVIS-2014-22355

PATIENT
  Age: 77 Year
  Sex: Female

DRUGS (9)
  1. CLARITHROMYCIN (UNKNOWN) [Suspect]
     Active Substance: CLARITHROMYCIN
     Indication: PNEUMONIA
     Dosage: 500 MG, BID
     Route: 048
     Dates: start: 20140713, end: 20140717
  2. OXYCODONE (UNKNOWN) [Suspect]
     Active Substance: OXYCODONE
     Indication: PAIN
     Dosage: 200 MG, BID
     Route: 048
     Dates: end: 20140717
  3. PARACETAMOL [Concomitant]
     Active Substance: ACETAMINOPHEN
     Indication: PRODUCT USED FOR UNKNOWN INDICATION
     Dosage: 1 G, SINGLE (ODS)
     Route: 048
  4. SIMVASTATIN. [Concomitant]
     Active Substance: SIMVASTATIN
     Indication: PRODUCT USED FOR UNKNOWN INDICATION
     Dosage: 40 MG, QPM. WITHHELD WHILST ON CLARITHROMYCIN
     Route: 048
  5. PREGABALIN. [Concomitant]
     Active Substance: PREGABALIN
     Indication: PAIN
     Dosage: 200 MG, BID
     Route: 048
  6. DORZOLAMIDE [Concomitant]
     Active Substance: DORZOLAMIDE
     Indication: PRODUCT USED FOR UNKNOWN INDICATION
     Dosage: 1 DF, TID. 1 DROP TDS
     Route: 061
  7. OXYNORM [Concomitant]
     Active Substance: OXYCODONE HYDROCHLORIDE
     Indication: PAIN
     Dosage: 40 MG, PRN, UP TO THREE TIMES A DAY. IMMEDIATE RELEASE CAPSULE
     Route: 048
  8. OXYCONTIN [Concomitant]
     Active Substance: OXYCODONE HYDROCHLORIDE
     Indication: PRODUCT USED FOR UNKNOWN INDICATION
     Dosage: UNK
     Route: 065
  9. AMOXICILLIN. [Concomitant]
     Active Substance: AMOXICILLIN
     Indication: PNEUMONIA
     Dosage: 1 G, TID
     Route: 048
     Dates: start: 20140713, end: 20140720

REACTIONS (4)
  - Accidental overdose [Recovered/Resolved]
  - Bradycardia [Unknown]
  - Unresponsive to stimuli [Unknown]
  - Miosis [Unknown]

NARRATIVE: CASE EVENT DATE: 20140717
